FAERS Safety Report 4979297-5 (Version None)
Quarter: 2006Q2

REPORT INFORMATION
  Report Type: 
  Country: None (occurrence: None)
  Receive Date: 20060421
  Receipt Date: 20051003
  Transmission Date: 20061013
  Serious: Yes (Hospitalization, Other)
  Sender: FDA-Public Use
  Company Number: US-MERCK-0510USA02884

PATIENT
  Age: 52 Year
  Sex: Female
  Weight: 73 kg

DRUGS (2)
  1. VIOXX [Suspect]
     Indication: TENDONITIS
     Route: 048
     Dates: start: 20000301, end: 20030101
  2. BEXTRA [Suspect]
     Route: 065

REACTIONS (3)
  - BLADDER DISORDER [None]
  - DEAFNESS [None]
  - MYOCARDIAL INFARCTION [None]
